FAERS Safety Report 5763967-5 (Version None)
Quarter: 2008Q2

REPORT INFORMATION
  Report Type: 
  Country: None (occurrence: None)
  Receive Date: 20080606
  Receipt Date: 20080606
  Transmission Date: 20081010
  Serious: Yes (Other)
  Sender: FDA-Public Use
  Company Number: None

PATIENT
  Age: 73 Year
  Sex: Female
  Weight: 68.9467 kg

DRUGS (1)
  1. DIGITEK BERTEK AND UDL LABEL [Suspect]
     Indication: CARDIAC FAILURE CONGESTIVE
     Dates: start: 20060901, end: 20080401

REACTIONS (6)
  - DIZZINESS [None]
  - NAUSEA [None]
  - OEDEMA PERIPHERAL [None]
  - PHARMACEUTICAL PRODUCT COMPLAINT [None]
  - TENDERNESS [None]
  - VOMITING [None]
